FAERS Safety Report 6110209-7 (Version None)
Quarter: 2009Q1

REPORT INFORMATION
  Report Type: 
  Country: None (occurrence: None)
  Receive Date: 20090309
  Receipt Date: 20090309
  Transmission Date: 20090719
  Serious: Yes (Other)
  Sender: FDA-Public Use
  Company Number: None

PATIENT
  Age: 72 Year
  Sex: Female
  Weight: 56.6996 kg

DRUGS (1)
  1. PROPAFENONE HCL [Suspect]
     Indication: CARDIAC DISORDER
     Dosage: 2 TABLET DAILY ORAL
     Route: 048
     Dates: start: 20070701, end: 20080909

REACTIONS (2)
  - HALLUCINATION, AUDITORY [None]
  - TINNITUS [None]
